FAERS Safety Report 7424251-7 (Version None)
Quarter: 2011Q2

REPORT INFORMATION
  Report Type: 
  Country: None (occurrence: None)
  Receive Date: 20110411
  Receipt Date: 20110325
  Transmission Date: 20111010
  Serious: Yes (Death, Hospitalization)
  Sender: FDA-Public Use
  Company Number: AUR-APL-2011-01069

PATIENT
  Age: 81 Year
  Sex: Male

DRUGS (3)
  1. FLUCLOXACILLIN [Concomitant]
  2. SIMVASTATIN [Suspect]
     Indication: OSTEOMYELITIS
     Dosage: 40MG
  3. FUSIDATE SODIUM [Suspect]
     Indication: DIABETIC FOOT

REACTIONS (4)
  - TOXICITY TO VARIOUS AGENTS [None]
  - RHABDOMYOLYSIS [None]
  - RENAL FAILURE ACUTE [None]
  - DRUG INTERACTION [None]
